FAERS Safety Report 23627808 (Version 1)
Quarter: 2024Q1

REPORT INFORMATION
  Report Type: Spontaneous
  Country: DK (occurrence: DK)
  Receive Date: 20240313
  Receipt Date: 20240313
  Transmission Date: 20240409
  Serious: Yes (Hospitalization)
  Sender: FDA-Public Use
  Company Number: None

PATIENT
  Age: 66 Year
  Sex: Male
  Weight: 47 kg

DRUGS (1)
  1. CHLORDIAZEPOXIDE [Suspect]
     Active Substance: CHLORDIAZEPOXIDE
     Indication: Alcohol withdrawal syndrome
     Dosage: TIME INTERVAL: TOTAL: STRENGTH: UNKNOWN.?BETWEEN 12JAN-18JAN2024 A TOTAL OF 700 MG WAS GIVEN.
     Route: 048
     Dates: start: 20240112, end: 20240118

REACTIONS (3)
  - Speech disorder [Unknown]
  - Coma [Recovering/Resolving]
  - Depressed level of consciousness [Unknown]

NARRATIVE: CASE EVENT DATE: 20240101
